FAERS Safety Report 18495443 (Version 1)
Quarter: 2020Q4

REPORT INFORMATION
  Report Type: Spontaneous
  Country: US (occurrence: US)
  Receive Date: 20201112
  Receipt Date: 20201112
  Transmission Date: 20210114
  Serious: Yes (Other)
  Sender: FDA-Public Use
  Company Number: US-TARO-2020TAR01687

PATIENT
  Age: 32 Year
  Sex: Female

DRUGS (1)
  1. WARFARIN [Suspect]
     Active Substance: WARFARIN
     Indication: ANTICOAGULANT THERAPY
     Dosage: UNK MG
     Route: 065

REACTIONS (3)
  - Exposure during pregnancy [Unknown]
  - Prosthetic cardiac valve thrombosis [Recovered/Resolved]
  - Abortion induced [Unknown]
